FAERS Safety Report 5786532-2 (Version None)
Quarter: 2008Q2

REPORT INFORMATION
  Report Type: 
  Country: None (occurrence: None)
  Receive Date: 20080624
  Receipt Date: 20080618
  Transmission Date: 20081010
  Serious: Yes (Other)
  Sender: FDA-Public Use
  Company Number: BR-BOEHRINGER INGELHEIM GMBH, GERMANY-2008-BP-09438BR

PATIENT
  Age: 60 Year
  Sex: Female

DRUGS (2)
  1. MICARDIS [Suspect]
     Indication: HYPERTENSION
     Route: 048
     Dates: start: 20080527
  2. PARANEURO [Concomitant]
     Indication: ANXIETY

REACTIONS (4)
  - BACK PAIN [None]
  - DRUG INEFFECTIVE [None]
  - FLATULENCE [None]
  - PAIN IN EXTREMITY [None]
